FAERS Safety Report 8156957-9 (Version None)
Quarter: 2012Q1

REPORT INFORMATION
  Report Type: 
  Country: None (occurrence: None)
  Receive Date: 20120103
  Receipt Date: 20111019
  Transmission Date: 20120608
  Serious: No
  Sender: FDA-Public Use
  Company Number: AE-2011-002033

PATIENT
  Age: 47 Year
  Sex: Male
  Weight: 100.6985 kg

DRUGS (3)
  1. PEGASYS [Concomitant]
  2. INCIVEK [Suspect]
     Dosage: 2250 MG (750 MG, 1 IN 8 HR) , ORAL
     Route: 048
     Dates: start: 20110725
  3. COPEGUS [Concomitant]

REACTIONS (11)
  - PYREXIA [None]
  - CHILLS [None]
  - TREMOR [None]
  - INFLUENZA LIKE ILLNESS [None]
  - WEIGHT DECREASED [None]
  - DIARRHOEA [None]
  - DYSURIA [None]
  - ANAL PRURITUS [None]
  - BONE PAIN [None]
  - HYPERHIDROSIS [None]
  - ANORECTAL DISCOMFORT [None]
